FAERS Safety Report 7491561-7 (Version None)
Quarter: 2011Q1

REPORT INFORMATION
  Report Type: 
  Country: None (occurrence: None)
  Receive Date: 20110318
  Receipt Date: 20091130
  Transmission Date: 20110831
  Serious: Yes (Other)
  Sender: FDA-Public Use
  Company Number: 2-1109-41

PATIENT
  Sex: Female

DRUGS (5)
  1. MULTI-VITAMINS [Concomitant]
  2. PROZAC [Concomitant]
  3. DERMA-SMOOTHE/FS [Suspect]
     Indication: PSORIASIS
     Dosage: TOPICAL
     Route: 061
  4. DERMA-SMOOTHE/FS [Suspect]
     Indication: PRURITUS
     Dosage: TOPICAL
     Route: 061
  5. MEDICATION FOR OSTEOPOROSIS (NAME UNKNOWN) [Concomitant]

REACTIONS (1)
  - PRURITUS [None]
